FAERS Safety Report 23014472 (Version 2)
Quarter: 2023Q4

REPORT INFORMATION
  Report Type: Spontaneous
  Country: ES (occurrence: ES)
  Receive Date: 20231002
  Receipt Date: 20231013
  Transmission Date: 20240110
  Serious: Yes (Other)
  Sender: FDA-Public Use
  Company Number: ES-002147023-NVSC2023ES209734

PATIENT
  Age: 80 Year
  Sex: Male

DRUGS (7)
  1. BEOVU [Suspect]
     Active Substance: BROLUCIZUMAB-DBLL
     Indication: Neovascular age-related macular degeneration
     Dosage: UNK
     Route: 031
     Dates: start: 20230906
  2. BEOVU [Suspect]
     Active Substance: BROLUCIZUMAB-DBLL
     Dosage: UNK
     Route: 031
     Dates: start: 20230919, end: 20231002
  3. ASPIRIN [Concomitant]
     Active Substance: ASPIRIN
     Indication: Product used for unknown indication
     Dosage: 300 MG, Q24H (EVERY 24 HOURS)
     Route: 065
  4. TORSEMIDE [Concomitant]
     Active Substance: TORSEMIDE
     Indication: Product used for unknown indication
     Dosage: 10 MG, Q24H (EVERY 24 HOURS)
     Route: 065
  5. BISOPROLOL FUMARATE [Concomitant]
     Active Substance: BISOPROLOL FUMARATE
     Indication: Product used for unknown indication
     Dosage: 2.5 MG (HALF A TABLET EVERY 12 HOURS)
     Route: 065
  6. ENALAPRIL [Concomitant]
     Active Substance: ENALAPRIL
     Indication: Product used for unknown indication
     Dosage: 20 MG (HALF A TABLET EVERY 24 HOURS)
     Route: 065
  7. SIMVASTATIN [Concomitant]
     Active Substance: SIMVASTATIN
     Indication: Product used for unknown indication
     Dosage: 10 MG, Q24H (EVERY 24 HOURS)
     Route: 065

REACTIONS (5)
  - Keratouveitis [Recovered/Resolved]
  - Eye pain [Recovered/Resolved]
  - Iridocyclitis [Recovered/Resolved]
  - Hyperaemia [Recovered/Resolved]
  - Anterior chamber flare [Recovered/Resolved]

NARRATIVE: CASE EVENT DATE: 20230906
